FAERS Safety Report 17860256 (Version 2)
Quarter: 2020Q2

REPORT INFORMATION
  Report Type: Spontaneous
  Country: SE (occurrence: SE)
  Receive Date: 20200604
  Receipt Date: 20200620
  Transmission Date: 20200714
  Serious: Yes (Other)
  Sender: FDA-Public Use
  Company Number: SE-ACCORD-184032

PATIENT
  Age: 54 Year
  Sex: Female

DRUGS (4)
  1. CISPLATIN. [Suspect]
     Active Substance: CISPLATIN
     Indication: MIXED HEPATOCELLULAR CHOLANGIOCARCINOMA
     Dosage: 25 MG/M^2, DAY 1 AND DAY 8, AND A NEW CYCLE ON DAY 29
     Dates: start: 201701, end: 201702
  2. CISPLATIN. [Suspect]
     Active Substance: CISPLATIN
     Indication: METASTASES TO LUNG
     Dosage: 25 MG/M^2, DAY 1 AND DAY 8, AND A NEW CYCLE ON DAY 29
     Dates: start: 201701, end: 201702
  3. GEMCITABINE. [Concomitant]
     Active Substance: GEMCITABINE
     Indication: METASTASES TO LUNG
     Dosage: 1,000 MG/M^2, DAY 1 AND DAY 8, AND A NEW CYCLE ON DAY 29
     Dates: start: 201701, end: 201702
  4. GEMCITABINE. [Concomitant]
     Active Substance: GEMCITABINE
     Indication: MIXED HEPATOCELLULAR CHOLANGIOCARCINOMA
     Dosage: 1,000 MG/M^2, DAY 1 AND DAY 8, AND A NEW CYCLE ON DAY 29
     Dates: start: 201701, end: 201702

REACTIONS (1)
  - Alpha 1 foetoprotein increased [Recovered/Resolved]

NARRATIVE: CASE EVENT DATE: 201702
